FAERS Safety Report 19656264 (Version 1)
Quarter: 2021Q3

REPORT INFORMATION
  Report Type: Spontaneous
  Country: FR (occurrence: FR)
  Receive Date: 20210804
  Receipt Date: 20210804
  Transmission Date: 20211014
  Serious: Yes (Hospitalization, Other)
  Sender: FDA-Public Use
  Company Number: FR-TEVA-2021-FR-1938840

PATIENT
  Age: 31 Year
  Sex: Male

DRUGS (6)
  1. QUETIAPINE. [Suspect]
     Active Substance: QUETIAPINE
     Indication: PRODUCT USED FOR UNKNOWN INDICATION
     Dosage: UNKNOWN
     Route: 065
     Dates: start: 202105, end: 202105
  2. COCAINE [Suspect]
     Active Substance: COCAINE
     Dosage: UNKNOWN
     Route: 065
     Dates: start: 202105, end: 202105
  3. LORAZEPAM. [Suspect]
     Active Substance: LORAZEPAM
     Indication: PRODUCT USED FOR UNKNOWN INDICATION
     Dosage: UNKNOWN
     Route: 065
     Dates: start: 20210519, end: 20210519
  4. OLANZAPINE. [Suspect]
     Active Substance: OLANZAPINE
     Indication: PRODUCT USED FOR UNKNOWN INDICATION
     Dosage: 9 TABLETS OF 10MG, 90MG
     Route: 065
     Dates: start: 20210519, end: 20210519
  5. ALCOOL [Suspect]
     Active Substance: ALCOHOL
     Dosage: UNKNOWN
     Route: 048
     Dates: start: 20210519, end: 20210519
  6. CANNABIS [Suspect]
     Active Substance: CANNABIS SATIVA SUBSP. INDICA TOP
     Dosage: UNKNOWN
     Route: 065
     Dates: start: 20210519, end: 20210519

REACTIONS (6)
  - Altered state of consciousness [Recovered/Resolved]
  - Confusional state [Recovering/Resolving]
  - Poisoning deliberate [Recovered/Resolved]
  - Agitation [Recovered/Resolved]
  - Drug abuse [Not Recovered/Not Resolved]
  - Dysarthria [Recovering/Resolving]

NARRATIVE: CASE EVENT DATE: 20210519
